FAERS Safety Report 8853284 (Version 1)
Quarter: 2012Q4

REPORT INFORMATION
  Report Type: 
  Country: US (occurrence: US)
  Receive Date: 20121022
  Receipt Date: 20121022
  Transmission Date: 20130627
  Serious: No
  Sender: FDA-Public Use
  Company Number: US-009507513-1210USA006190

PATIENT
  Sex: Female

DRUGS (3)
  1. VICTRELIS [Suspect]
     Indication: HEPATITIS C
     Dosage: UNK
     Dates: start: 20121005
  2. RIBAVIRIN [Suspect]
     Indication: HEPATITIS C
     Dosage: UNK
     Dates: start: 20120907
  3. PEGASYS [Suspect]
     Indication: HEPATITIS C
     Dosage: UNK
     Dates: start: 20120913

REACTIONS (10)
  - Chills [Unknown]
  - Pyrexia [Unknown]
  - Cough [Unknown]
  - Visual acuity reduced [Unknown]
  - Fatigue [Unknown]
  - Pain in extremity [Unknown]
  - Memory impairment [Unknown]
  - White blood cell count decreased [Unknown]
  - Lethargy [Unknown]
  - Dizziness [Unknown]
